FAERS Safety Report 17365311 (Version 1)
Quarter: 2020Q1

REPORT INFORMATION
  Report Type: Spontaneous
  Country: GB (occurrence: GB)
  Receive Date: 20200204
  Receipt Date: 20200204
  Transmission Date: 20200409
  Serious: Yes (Death, Other)
  Sender: FDA-Public Use
  Company Number: GB-MYLANLABS-2020M1012789

PATIENT
  Sex: Female

DRUGS (9)
  1. ETANERCEPT [Suspect]
     Active Substance: ETANERCEPT
     Indication: STILL^S DISEASE
  2. FLUDARABINE [Suspect]
     Active Substance: FLUDARABINE PHOSPHATE
     Indication: BONE MARROW CONDITIONING REGIMEN
     Dosage: 30 MG/M2, QD, DAYS 8 TO 4
  3. METHOTREXATE. [Suspect]
     Active Substance: METHOTREXATE
     Indication: STILL^S DISEASE
     Dosage: UNK
  4. CYCLOSPORINE. [Suspect]
     Active Substance: CYCLOSPORINE
     Indication: STILL^S DISEASE
  5. ANAKINRA [Suspect]
     Active Substance: ANAKINRA
     Indication: STILL^S DISEASE
  6. ALEMTUZUMAB [Suspect]
     Active Substance: ALEMTUZUMAB
     Indication: BONE MARROW CONDITIONING REGIMEN
     Dosage: 0.2 MG/KG, QD, DAYS 8-4
  7. TOCILIZUMAB. [Suspect]
     Active Substance: TOCILIZUMAB
     Indication: STILL^S DISEASE
     Dosage: UNK
  8. THALIDOMIDE [Suspect]
     Active Substance: THALIDOMIDE
     Indication: STILL^S DISEASE
     Dosage: UNK
  9. MELPHALAN. [Suspect]
     Active Substance: MELPHALAN
     Indication: BONE MARROW CONDITIONING REGIMEN
     Dosage: 140 MG/M2, DAY 3

REACTIONS (9)
  - Viraemia [Unknown]
  - Drug ineffective [Unknown]
  - Off label use [Unknown]
  - BK virus infection [Unknown]
  - Intentional product misuse [Unknown]
  - Sepsis [Fatal]
  - Encephalitis viral [Unknown]
  - Herpes zoster [Unknown]
  - Epstein-Barr viraemia [Unknown]
